FAERS Safety Report 7461230-8 (Version None)
Quarter: 2011Q2

REPORT INFORMATION
  Report Type: 
  Country: None (occurrence: None)
  Receive Date: 20110506
  Receipt Date: 20110428
  Transmission Date: 20111010
  Serious: Yes (Other)
  Sender: FDA-Public Use
  Company Number: NL-AMGEN-NLDSP2011022731

PATIENT
  Age: 33 Year
  Sex: Female

DRUGS (9)
  1. IBUPROFEN [Concomitant]
     Dosage: UNK
  2. ALENDRONIC ACID [Concomitant]
     Dosage: UNK
  3. FOLIC ACID [Concomitant]
     Dosage: UNK
  4. OMEPRAZOLE [Concomitant]
     Dosage: UNK
  5. PREDNISONE [Concomitant]
     Dosage: UNK
  6. PLAQUENIL [Concomitant]
     Dosage: UNK
  7. MTX                                /00113801/ [Concomitant]
     Dosage: UNK
  8. ENBREL [Suspect]
     Indication: RHEUMATOID ARTHRITIS
     Dosage: 50 MG, WEEKLY
     Dates: start: 20110209
  9. LIVIAL [Concomitant]
     Dosage: UNK

REACTIONS (2)
  - DECREASED IMMUNE RESPONSIVENESS [None]
  - INFLUENZA LIKE ILLNESS [None]
